FAERS Safety Report 19300655 (Version 3)
Quarter: 2021Q2

REPORT INFORMATION
  Report Type: Report from Study
  Country: DE (occurrence: DE)
  Receive Date: 20210524
  Receipt Date: 20210614
  Transmission Date: 20210717
  Serious: Yes (Hospitalization)
  Sender: FDA-Public Use
  Company Number: DE-EXELIXIS-XL18421040717

PATIENT

DRUGS (4)
  1. ZOLENDRONSAURE [Concomitant]
     Indication: METASTASES TO BONE
  2. CORONA VACCINE BIONTECH [Concomitant]
  3. ATEZOLIZUMAB. [Suspect]
     Active Substance: ATEZOLIZUMAB
     Indication: NON-SMALL CELL LUNG CANCER METASTATIC
     Dosage: 1200 MG, Q3WEEKS
     Route: 042
     Dates: start: 20210505
  4. CABOZANTINIB [Suspect]
     Active Substance: CABOZANTINIB
     Indication: NON-SMALL CELL LUNG CANCER METASTATIC
     Dosage: 40 MG, QD
     Route: 048
     Dates: start: 20210505

REACTIONS (1)
  - Herpes zoster [Recovered/Resolved]

NARRATIVE: CASE EVENT DATE: 20210516
